FAERS Safety Report 19936994 (Version 1)
Quarter: 2021Q4

REPORT INFORMATION
  Report Type: Spontaneous
  Country: US (occurrence: US)
  Receive Date: 20211009
  Receipt Date: 20211009
  Transmission Date: 20220304
  Serious: Yes (Hospitalization, Other)
  Sender: FDA-Public Use
  Company Number: US-NOVARTISPH-NVSC2021US226863

PATIENT
  Sex: Male

DRUGS (1)
  1. ENTRESTO [Suspect]
     Active Substance: SACUBITRIL\VALSARTAN
     Indication: Product used for unknown indication
     Dosage: 4 YEARS AGO, 24/26 MG
     Route: 065

REACTIONS (4)
  - Myocardial infarction [Unknown]
  - Immunodeficiency [Unknown]
  - Hypotension [Unknown]
  - Renal impairment [Unknown]
